FAERS Safety Report 8269798-9 (Version None)
Quarter: 2012Q2

REPORT INFORMATION
  Report Type: 
  Country: None (occurrence: None)
  Receive Date: 20120406
  Receipt Date: 20120324
  Transmission Date: 20120825
  Serious: Yes (Hospitalization)
  Sender: FDA-Public Use
  Company Number: 2012AP000827

PATIENT
  Age: 65 Year
  Sex: Female

DRUGS (3)
  1. HYDROXYCUT [Suspect]
     Indication: WEIGHT DECREASED
  2. SIMVASTATIN [Concomitant]
  3. CITALOPRAM HYDROBROMIDE [Suspect]
     Indication: DEPRESSION
     Dosage: 20 MG; QD;

REACTIONS (11)
  - PHOTOPHOBIA [None]
  - HYPERACUSIS [None]
  - CEREBROVASCULAR SPASM [None]
  - NAUSEA [None]
  - DRUG INTERACTION [None]
  - BLOOD CHOLESTEROL INCREASED [None]
  - LOW DENSITY LIPOPROTEIN INCREASED [None]
  - MUSCULAR WEAKNESS [None]
  - HYPERTENSION [None]
  - BLOOD PRESSURE DECREASED [None]
  - VISUAL IMPAIRMENT [None]
